FAERS Safety Report 5314313-2 (Version None)
Quarter: 2007Q2

REPORT INFORMATION
  Report Type: 
  Country: None (occurrence: None)
  Receive Date: 20070502
  Receipt Date: 20070426
  Transmission Date: 20071010
  Serious: Yes (Other)
  Sender: FDA-Public Use
  Company Number: HQWYE875026APR07

PATIENT
  Age: 64 Year
  Sex: Female

DRUGS (3)
  1. CORDARONE [Suspect]
     Indication: ATRIAL FIBRILLATION
     Route: 048
     Dates: start: 20010504, end: 20010506
  2. CORDARONE [Suspect]
     Route: 048
     Dates: start: 20010507, end: 20010507
  3. DESLANOSIDE [Concomitant]
     Indication: ATRIAL FIBRILLATION
     Dosage: NOT PROVIDED
     Route: 042
     Dates: start: 20010504

REACTIONS (3)
  - INCORRECT DOSE ADMINISTERED [None]
  - NODAL RHYTHM [None]
  - SINUS BRADYCARDIA [None]
